FAERS Safety Report 9680949 (Version 1)
Quarter: 2013Q4

REPORT INFORMATION
  Report Type: Report from Study
  Country: LY (occurrence: LY)
  Receive Date: 20131111
  Receipt Date: 20131111
  Transmission Date: 20140711
  Serious: Yes (Death)
  Sender: FDA-Public Use
  Company Number: LY-SA-2013SA113025

PATIENT
  Age: 71 Year
  Sex: Female

DRUGS (5)
  1. PLAVIX [Suspect]
     Indication: MYOCARDIAL INFARCTION
     Route: 048
     Dates: start: 20130929, end: 20131008
  2. ASPEGIC [Concomitant]
     Route: 048
     Dates: end: 20131008
  3. CINCOR [Concomitant]
     Route: 048
     Dates: end: 20131008
  4. INSULATARD [Concomitant]
     Route: 058
     Dates: end: 20131008
  5. ATOR [Concomitant]
     Route: 048
     Dates: end: 20131008

REACTIONS (4)
  - Death [Fatal]
  - Cough [Fatal]
  - Dyspnoea [Fatal]
  - Chest pain [Fatal]
